FAERS Safety Report 9331121 (Version 1)
Quarter: 2013Q2

REPORT INFORMATION
  Report Type: Spontaneous
  Country: GB (occurrence: None)
  Receive Date: 20130531
  Receipt Date: 20130531
  Transmission Date: 20140414
  Serious: Yes (Other)
  Sender: FDA-Public Use
  Company Number: AUR-APL-2013-04210

PATIENT
  Age: 67 Year
  Sex: Male

DRUGS (2)
  1. MIRTAZAPINE [Suspect]
     Indication: INSOMNIA
     Route: 048
     Dates: end: 20130408
  2. RASAGILINE (RASAGILINE) [Concomitant]

REACTIONS (3)
  - Anxiety [None]
  - Presyncope [None]
  - Off label use [None]
